FAERS Safety Report 5823506-7 (Version None)
Quarter: 2008Q3

REPORT INFORMATION
  Report Type: 
  Country: None (occurrence: None)
  Receive Date: 20080725
  Receipt Date: 20080721
  Transmission Date: 20090109
  Serious: Yes (Hospitalization)
  Sender: FDA-Public Use
  Company Number: US-ABBOTT-08P-163-0464520-00

PATIENT
  Sex: Female
  Weight: 86.26 kg

DRUGS (14)
  1. HUMIRA [Suspect]
     Indication: RHEUMATOID ARTHRITIS
     Route: 058
     Dates: start: 20050101
  2. PREDNISONE TAB [Concomitant]
     Indication: RHEUMATOID ARTHRITIS
     Route: 048
     Dates: start: 20080720
  3. AMRIL [Concomitant]
     Indication: DIABETES MELLITUS
     Dosage: 2-3 PILLS DAILY
     Route: 048
     Dates: start: 20030101
  4. RYTHMAL [Concomitant]
     Indication: HEART RATE IRREGULAR
     Route: 048
     Dates: start: 20040101
  5. VERAPAMIL-LA [Concomitant]
     Indication: HYPERTENSION
     Dosage: DAILY EVERY NIGHT
     Route: 048
     Dates: start: 20040101
  6. TORSEMIDE [Concomitant]
     Indication: HYPERTENSION
     Route: 048
     Dates: start: 20040101
  7. DIOVAN HCT [Concomitant]
     Indication: HYPERTENSION
     Dosage: DAILY EVERY MORNING
     Route: 048
     Dates: start: 20020101
  8. ZOCOR-GENERIC [Concomitant]
     Indication: BLOOD CHOLESTEROL INCREASED
     Route: 048
     Dates: start: 20040101
  9. TETRYZOLINE HYDROCHLORIDE [Concomitant]
     Indication: GLAUCOMA
     Dosage: 1 GTT EACH EYE
     Route: 061
     Dates: start: 20020101
  10. POTASSIUM CHLORIDE [Concomitant]
     Indication: MINERAL SUPPLEMENTATION
     Route: 048
     Dates: start: 20040101
  11. MULTI-VITAMIN [Concomitant]
     Indication: VITAMIN SUPPLEMENTATION
     Route: 048
  12. FLORNASE-SPRAY [Concomitant]
     Indication: SEASONAL ALLERGY
     Route: 055
     Dates: start: 20050101
  13. FLOZENT-INHALER [Concomitant]
     Indication: ASTHMA
     Route: 055
     Dates: start: 20050101
  14. SULFASALAZINE [Concomitant]
     Indication: RHEUMATOID ARTHRITIS
     Dosage: 8-500MG TAB DIVIDED DOSE EVERY 8 HR
     Route: 048
     Dates: start: 20040101

REACTIONS (5)
  - ARTHRALGIA [None]
  - DRUG DOSE OMISSION [None]
  - FALL [None]
  - HIP FRACTURE [None]
  - URINARY TRACT INFECTION [None]
